FAERS Safety Report 5082840-1 (Version None)
Quarter: 2006Q3

REPORT INFORMATION
  Report Type: 
  Country: None (occurrence: None)
  Receive Date: 20060817
  Receipt Date: 20060803
  Transmission Date: 20061208
  Serious: Yes (Other)
  Sender: FDA-Public Use
  Company Number: DE-ABBOTT-06P-062-0339613-00

PATIENT
  Age: 52 Year
  Sex: Male

DRUGS (5)
  1. RITONAVIR [Suspect]
     Indication: HIV INFECTION
     Dates: start: 20050201
  2. TIPRANAVIR [Suspect]
     Indication: HIV INFECTION
     Dates: start: 20050201
  3. ENFUVIRTIDE [Interacting]
     Indication: HIV INFECTION
     Dates: start: 20040201
  4. ENFUVIRTIDE [Interacting]
  5. LAMIVUDINE + ZIDOVUDINE [Concomitant]
     Indication: HIV INFECTION
     Dates: start: 20040201

REACTIONS (9)
  - ALANINE AMINOTRANSFERASE INCREASED [None]
  - ASPARTATE AMINOTRANSFERASE INCREASED [None]
  - DRUG INTERACTION [None]
  - GAMMA-GLUTAMYLTRANSFERASE INCREASED [None]
  - HEPATOTOXICITY [None]
  - LIVER FUNCTION TEST ABNORMAL [None]
  - SKIN REACTION [None]
  - VIRAL LOAD INCREASED [None]
  - WEIGHT DECREASED [None]
